FAERS Safety Report 5081022-7 (Version None)
Quarter: 2006Q3

REPORT INFORMATION
  Report Type: 
  Country: None (occurrence: None)
  Receive Date: 20060810
  Receipt Date: 20060804
  Transmission Date: 20061208
  Serious: Yes (Death, Hospitalization)
  Sender: FDA-Public Use
  Company Number: 111726ISR

PATIENT
  Age: 91 Year
  Sex: Female

DRUGS (5)
  1. BUMETANIDE [Suspect]
     Indication: HYPERTENSION
  2. DICLOFENAC [Suspect]
     Indication: OSTEOARTHRITIS
  3. IBUPROFEN [Suspect]
     Indication: OSTEOARTHRITIS
  4. SPIRONOLACTONE [Suspect]
     Indication: HYPERTENSION
  5. DIGOXIN [Concomitant]

REACTIONS (3)
  - FALL [None]
  - RENAL FAILURE [None]
  - THERAPEUTIC AGENT TOXICITY [None]
